FAERS Safety Report 11587873 (Version 3)
Quarter: 2015Q4

REPORT INFORMATION
  Report Type: Spontaneous
  Country: US (occurrence: US)
  Receive Date: 20151001
  Receipt Date: 20151007
  Transmission Date: 20160304
  Serious: No
  Sender: FDA-Public Use
  Company Number: CHPA2015US011540

PATIENT
  Sex: Female

DRUGS (5)
  1. VOLTAREN [Suspect]
     Active Substance: DICLOFENAC SODIUM
     Indication: PERIARTHRITIS
     Dosage: TOTAL 8 G, BID
     Route: 061
     Dates: start: 20150924, end: 20150928
  2. VOLTAREN [Suspect]
     Active Substance: DICLOFENAC SODIUM
     Indication: TENDONITIS
  3. VOLTAREN [Suspect]
     Active Substance: DICLOFENAC SODIUM
     Indication: PAIN IN EXTREMITY
  4. VOLTAREN [Suspect]
     Active Substance: DICLOFENAC SODIUM
     Indication: BURSITIS
  5. VOLTAREN [Suspect]
     Active Substance: DICLOFENAC SODIUM
     Indication: BACK PAIN

REACTIONS (7)
  - Nausea [Recovered/Resolved]
  - Inappropriate schedule of drug administration [Unknown]
  - Incorrect dose administered [Unknown]
  - Vomiting [Recovered/Resolved]
  - Drug administered at inappropriate site [Unknown]
  - Drug ineffective for unapproved indication [Unknown]
  - Poor quality sleep [Recovered/Resolved]

NARRATIVE: CASE EVENT DATE: 20150924
